FAERS Safety Report 8507451-4 (Version None)
Quarter: 2012Q3

REPORT INFORMATION
  Report Type: 
  Country: None (occurrence: None)
  Receive Date: 20120712
  Receipt Date: 20120709
  Transmission Date: 20120928
  Serious: Yes (Hospitalization, Other)
  Sender: FDA-Public Use
  Company Number: US-TEVA-347760USA

PATIENT
  Age: 16 Month
  Sex: Male

DRUGS (6)
  1. METHYLPREDNISOLONE [Suspect]
     Indication: TRANSPLANT REJECTION
     Dosage: 20 MG/KG DAILY; 3 DAY TREATMENT
  2. PREDNISOLONE [Suspect]
     Indication: IMMUNOSUPPRESSANT DRUG THERAPY
  3. DACLIXIMAB [Suspect]
     Indication: IMMUNOSUPPRESSANT DRUG THERAPY
  4. GANCICLOVIR [Concomitant]
     Indication: ANTIVIRAL PROPHYLAXIS
  5. TACROLIMUS [Suspect]
     Indication: IMMUNOSUPPRESSANT DRUG THERAPY
     Dosage: TROUGH LEVELS:10-15 NG/ML; DRUG LEVEL: 4-20 NG/ML IN THE 1ST 2 POSTOPERATIVE WKS (AVG: 11.7 NG/ML)
  6. MYCOPHENOLIC ACID [Suspect]
     Indication: IMMUNOSUPPRESSANT DRUG THERAPY

REACTIONS (1)
  - ADENOVIRAL HEPATITIS [None]
